FAERS Safety Report 21962197 (Version 6)
Quarter: 2023Q2

REPORT INFORMATION
  Report Type: Spontaneous
  Country: US (occurrence: US)
  Receive Date: 20230207
  Receipt Date: 20230418
  Transmission Date: 20230722
  Serious: Yes (Other)
  Sender: FDA-Public Use
  Company Number: US-PFIZER INC-2021285167

PATIENT
  Age: 65 Year
  Sex: Female
  Weight: 64.5 kg

DRUGS (2)
  1. XELJANZ XR [Suspect]
     Active Substance: TOFACITINIB CITRATE
     Dosage: 11 MG, ALTERNATE DAY (EVERY OTHER DAY)
     Dates: end: 202301
  2. CARVEDILOL [Concomitant]
     Active Substance: CARVEDILOL
     Dosage: UNK

REACTIONS (9)
  - Limb operation [Unknown]
  - Limb operation [Unknown]
  - Arthritis [Unknown]
  - Hand deformity [Unknown]
  - Cartilage injury [Unknown]
  - Joint arthroplasty [Unknown]
  - Loss of personal independence in daily activities [Unknown]
  - Pain [Not Recovered/Not Resolved]
  - Off label use [Unknown]
